FAERS Safety Report 11174829 (Version 1)
Quarter: 2015Q2

REPORT INFORMATION
  Report Type: Spontaneous
  Country: US (occurrence: None)
  Receive Date: 20150608
  Receipt Date: 20150608
  Transmission Date: 20150821
  Serious: Yes (Other)
  Sender: FDA-Public Use
  Company Number: None

PATIENT
  Age: 15 Day
  Sex: Female
  Weight: 74.84 kg

DRUGS (12)
  1. VALIUM [Suspect]
     Active Substance: DIAZEPAM
     Indication: NERVE COMPRESSION
  2. CALCIUM [Concomitant]
     Active Substance: CALCIUM
  3. VALIUM [Concomitant]
     Active Substance: DIAZEPAM
  4. VITAMINS C [Concomitant]
  5. COQ10 [Concomitant]
     Active Substance: UBIDECARENONE
  6. VITAMIN A [Concomitant]
     Active Substance: VITAMIN A
  7. FISH OIL [Concomitant]
     Active Substance: FISH OIL
  8. PRO-BIOTICS [Concomitant]
  9. DURAGESIC [Concomitant]
     Active Substance: FENTANYL
  10. VITAMIN D [Concomitant]
     Active Substance: CHOLECALCIFEROL
  11. CELEBREX [Concomitant]
     Active Substance: CELECOXIB
  12. VALIUM [Suspect]
     Active Substance: DIAZEPAM
     Indication: NERVE INJURY

REACTIONS (3)
  - Product substitution issue [None]
  - Drug ineffective [None]
  - Product quality issue [None]

NARRATIVE: CASE EVENT DATE: 20150606
